FAERS Safety Report 10177567 (Version 1)
Quarter: 2014Q2

REPORT INFORMATION
  Report Type: Spontaneous
  Country: US (occurrence: US)
  Receive Date: 20140516
  Receipt Date: 20140516
  Transmission Date: 20141212
  Serious: Yes (Other)
  Sender: FDA-Public Use
  Company Number: US-PFIZER INC-2014135162

PATIENT
  Sex: Female

DRUGS (3)
  1. LYRICA [Suspect]
     Indication: PAIN
     Dosage: 300 MG, 3X/DAY
     Dates: start: 20140506
  2. LYRICA [Suspect]
     Dosage: 300 MG, 2X/DAY
     Dates: end: 20140511
  3. FENTANYL [Concomitant]
     Indication: PAIN
     Dosage: UNK

REACTIONS (6)
  - Blindness [Not Recovered/Not Resolved]
  - Visual impairment [Not Recovered/Not Resolved]
  - Drug intolerance [Unknown]
  - Arthralgia [Unknown]
  - Feeling abnormal [Unknown]
  - Drug effect incomplete [Unknown]
